FAERS Safety Report 13914506 (Version 1)
Quarter: 2017Q3

REPORT INFORMATION
  Report Type: Spontaneous
  Country: US (occurrence: US)
  Receive Date: 20170828
  Receipt Date: 20170828
  Transmission Date: 20171127
  Serious: Yes (Other)
  Sender: FDA-Public Use
  Company Number: US-BEH-2017083082

PATIENT
  Age: 69 Year
  Sex: Male
  Weight: 83.45 kg

DRUGS (24)
  1. MACITENTAN [Concomitant]
     Active Substance: MACITENTAN
  2. COUMADIN [Concomitant]
     Active Substance: WARFARIN SODIUM
  3. LASIX [Concomitant]
     Active Substance: FUROSEMIDE
  4. SILDENAFIL. [Concomitant]
     Active Substance: SILDENAFIL
  5. OXYGEN. [Concomitant]
     Active Substance: OXYGEN
  6. MONTELUKAST [Concomitant]
     Active Substance: MONTELUKAST SODIUM
  7. TUDORZA PRESSAIR [Concomitant]
     Active Substance: ACLIDINIUM BROMIDE
  8. PERFOROMIST [Concomitant]
     Active Substance: FORMOTEROL FUMARATE DIHYDRATE
  9. BUDESONIDE. [Concomitant]
     Active Substance: BUDESONIDE
  10. BETA CAROTENE [Concomitant]
  11. PANTOPRAZOLE [Concomitant]
     Active Substance: PANTOPRAZOLE
  12. SODIUM CHLORIDE. [Concomitant]
     Active Substance: SODIUM CHLORIDE
  13. ACETAMINOPHEN. [Concomitant]
     Active Substance: ACETAMINOPHEN
  14. MULTIVITAMIN                       /00097801/ [Concomitant]
     Active Substance: VITAMINS
  15. NASONEX [Concomitant]
     Active Substance: MOMETASONE FUROATE
  16. LISINOPRIL. [Concomitant]
     Active Substance: LISINOPRIL
  17. XOPENEX [Concomitant]
     Active Substance: LEVALBUTEROL HYDROCHLORIDE
  18. ZEMAIRA [Suspect]
     Active Substance: .ALPHA.1-PROTEINASE INHIBITOR HUMAN
     Indication: PULMONARY ARTERIAL HYPERTENSION
     Dosage: 60 MG/KG, UNK
     Route: 042
     Dates: start: 20150305
  19. EPIPEN [Concomitant]
     Active Substance: EPINEPHRINE
  20. LUTEIN                             /01638501/ [Concomitant]
     Active Substance: LUTEIN
  21. LYCOPENE [Concomitant]
     Active Substance: LYCOPENE
  22. ZEMAIRA [Suspect]
     Active Substance: .ALPHA.1-PROTEINASE INHIBITOR HUMAN
     Dosage: UNK
     Route: 042
  23. DIPHENHYDRAMINE. [Concomitant]
     Active Substance: DIPHENHYDRAMINE
  24. LEXAPRO [Concomitant]
     Active Substance: ESCITALOPRAM OXALATE

REACTIONS (1)
  - Lung transplant [Unknown]

NARRATIVE: CASE EVENT DATE: 201708
